FAERS Safety Report 4349886-X (Version None)
Quarter: 2004Q2

REPORT INFORMATION
  Report Type: 
  Country: None (occurrence: None)
  Receive Date: 20040426
  Receipt Date: 20040409
  Transmission Date: 20050107
  Serious: Yes (Hospitalization)
  Sender: FDA-Public Use
  Company Number: MAG-2002-0000048

PATIENT
  Age: 75 Year
  Sex: Male

DRUGS (6)
  1. POVIDONE IODINE [Suspect]
     Dosage: OPHTHALMIC
     Route: 047
     Dates: start: 20020304, end: 20020304
  2. XYLOCAINE [Suspect]
     Dates: start: 20020304, end: 20020304
  3. DUOVISC [Suspect]
     Dates: start: 20020304, end: 20020304
  4. BSS [Suspect]
     Dates: start: 20020304, end: 20020304
  5. STER-DEX(DEXAMETHASONE, OXYTERACYCLINE) [Suspect]
  6. OFLOCET (OFLOCACIN) [Concomitant]

REACTIONS (3)
  - BACTERIAL INFECTION [None]
  - ENDOPHTHALMITIS [None]
  - POSTOPERATIVE INFECTION [None]
